FAERS Safety Report 6053362-6 (Version None)
Quarter: 2009Q1

REPORT INFORMATION
  Report Type: 
  Country: None (occurrence: None)
  Receive Date: 20090123
  Receipt Date: 20090116
  Transmission Date: 20090719
  Serious: Yes (Death, Hospitalization)
  Sender: FDA-Public Use
  Company Number: STI-2009-00062

PATIENT
  Age: 75 Year
  Sex: Male

DRUGS (5)
  1. CLINDAMYCIN           (CLINDAMYCIN PHOSPHATE) [Suspect]
     Indication: SKIN ULCER
  2. VILDAGLIPTIN [Suspect]
     Indication: DRUG USE FOR UNKNOWN INDICATION
     Dosage: 50 MG (50 MG, 2 IN 2 DAYS)
     Dates: start: 20081216
  3. GLICLAZIDE (GLICLAZIDE) [Concomitant]
  4. METFORMIN HCL [Concomitant]
  5. A NUMBER OF OTHER DRUGS'          (NOT FURTHER SPECIFIED) [Concomitant]

REACTIONS (2)
  - HYPERSENSITIVITY [None]
  - RENAL FAILURE [None]
